FAERS Safety Report 6651196-2 (Version None)
Quarter: 2010Q1

REPORT INFORMATION
  Report Type: 
  Country: None (occurrence: None)
  Receive Date: 20100309
  Receipt Date: 20091211
  Transmission Date: 20100710
  Serious: No
  Sender: FDA-Public Use
  Company Number: 2009SP041457

PATIENT

DRUGS (2)
  1. SAPHRIS [Suspect]
     Indication: DRUG USE FOR UNKNOWN INDICATION
  2. GEODON [Concomitant]

REACTIONS (3)
  - DYSGEUSIA [None]
  - HYPOAESTHESIA [None]
  - LETHARGY [None]
